FAERS Safety Report 5236103-1 (Version None)
Quarter: 2007Q1

REPORT INFORMATION
  Report Type: 
  Country: None (occurrence: None)
  Receive Date: 20070212
  Receipt Date: 20070206
  Transmission Date: 20070707
  Serious: Yes (Hospitalization)
  Sender: FDA-Public Use
  Company Number: US-BRISTOL-MYERS SQUIBB COMPANY-13670773

PATIENT
  Age: 48 Year
  Sex: Male
  Weight: 76 kg

DRUGS (12)
  1. CETUXIMAB [Suspect]
     Indication: COLORECTAL CANCER METASTATIC
     Route: 042
     Dates: start: 20061117
  2. OXALIPLATIN [Suspect]
     Indication: COLORECTAL CANCER METASTATIC
     Dates: start: 20061117
  3. XELODA [Suspect]
     Indication: COLORECTAL CANCER METASTATIC
     Dates: start: 20061117
  4. ASPIRIN [Concomitant]
  5. M.V.I. [Concomitant]
  6. SELENIUM SULFIDE [Concomitant]
  7. COMPAZINE [Concomitant]
     Indication: VOMITING
  8. CLEOCIN GEL [Concomitant]
     Indication: RASH
  9. IMODIUM [Concomitant]
     Indication: DIARRHOEA
  10. MINOCYCLINE HCL [Concomitant]
     Indication: RASH
  11. ATIVAN [Concomitant]
  12. GAS-X [Concomitant]

REACTIONS (5)
  - ABDOMINAL DISCOMFORT [None]
  - DIARRHOEA [None]
  - FLATULENCE [None]
  - NAUSEA [None]
  - PYREXIA [None]
